FAERS Safety Report 15608391 (Version 2)
Quarter: 2018Q4

REPORT INFORMATION
  Report Type: Report from Study
  Country: US (occurrence: US)
  Receive Date: 20181112
  Receipt Date: 20181217
  Transmission Date: 20190205
  Serious: Yes (Life-Threatening, Hospitalization)
  Sender: FDA-Public Use
  Company Number: US-EISAI MEDICAL RESEARCH-EC-2018-047395

PATIENT
  Age: 77 Year
  Sex: Female
  Weight: 69.8 kg

DRUGS (26)
  1. LENVATINIB [Suspect]
     Active Substance: LENVATINIB
     Route: 048
     Dates: start: 20171214, end: 20181105
  2. REPAGLINIDE. [Concomitant]
     Active Substance: REPAGLINIDE
  3. ENALAPRIL [Concomitant]
     Active Substance: ENALAPRIL
  4. DORZOLAMIDE [Concomitant]
     Active Substance: DORZOLAMIDE
  5. PREDNISOLONE. [Concomitant]
     Active Substance: PREDNISOLONE
  6. BLACK CHERRY CASPULE [Concomitant]
  7. TRIAMCINOLONE [Concomitant]
     Active Substance: TRIAMCINOLONE
  8. AZOPT [Concomitant]
     Active Substance: BRINZOLAMIDE
  9. ASPIRIN. [Concomitant]
     Active Substance: ASPIRIN
  10. LENVATINIB [Suspect]
     Active Substance: LENVATINIB
     Indication: RENAL CELL CARCINOMA
     Route: 048
     Dates: start: 20170518, end: 20170807
  11. LENVATINIB [Suspect]
     Active Substance: LENVATINIB
     Route: 048
     Dates: start: 20170808, end: 20171011
  12. ALLOPURINOL. [Concomitant]
     Active Substance: ALLOPURINOL
  13. METOPROLOL. [Concomitant]
     Active Substance: METOPROLOL
  14. SIMVASTATIN. [Concomitant]
     Active Substance: SIMVASTATIN
  15. LATANOPROST. [Concomitant]
     Active Substance: LATANOPROST
  16. LENVATINIB [Suspect]
     Active Substance: LENVATINIB
     Route: 048
     Dates: start: 20171012, end: 20171213
  17. EVEROLIMUS. [Suspect]
     Active Substance: EVEROLIMUS
     Indication: RENAL CELL CARCINOMA
     Route: 048
     Dates: start: 20170518, end: 20171210
  18. EVEROLIMUS. [Suspect]
     Active Substance: EVEROLIMUS
     Route: 048
     Dates: start: 20171211, end: 20181105
  19. DOCUSATE SODIUM. [Concomitant]
     Active Substance: DOCUSATE SODIUM
  20. LATANOPROST. [Concomitant]
     Active Substance: LATANOPROST
  21. ZINC OXIDE. [Concomitant]
     Active Substance: ZINC OXIDE
  22. PANTOPRAZOLE [Concomitant]
     Active Substance: PANTOPRAZOLE
  23. COMBIGAN [Concomitant]
     Active Substance: BRIMONIDINE TARTRATE\TIMOLOL MALEATE
  24. MUPIROCIN. [Concomitant]
     Active Substance: MUPIROCIN
  25. TAMSULOSIN [Concomitant]
     Active Substance: TAMSULOSIN
  26. LEVOTHYROXINE. [Concomitant]
     Active Substance: LEVOTHYROXINE

REACTIONS (1)
  - Confusional state [Recovered/Resolved]

NARRATIVE: CASE EVENT DATE: 20181105
